FAERS Safety Report 12818050 (Version 1)
Quarter: 2016Q4

REPORT INFORMATION
  Report Type: Spontaneous
  Country: US (occurrence: US)
  Receive Date: 20161005
  Receipt Date: 20161005
  Transmission Date: 20170207
  Serious: Yes (Hospitalization)
  Sender: FDA-Public Use
  Company Number: PHHY2016US135288

PATIENT
  Age: 21 Year
  Sex: Female

DRUGS (2)
  1. BUPROPION. [Suspect]
     Active Substance: BUPROPION
     Indication: PRODUCT USED FOR UNKNOWN INDICATION
     Dosage: 13.5 G, UNK
     Route: 065
  2. DEXAMETHASONE. [Concomitant]
     Active Substance: DEXAMETHASONE
     Indication: INFLAMMATION
     Dosage: 10 MG, Q8H
     Route: 065

REACTIONS (17)
  - Lactic acidosis [Recovered/Resolved]
  - Cardiac disorder [Recovered/Resolved]
  - Confusional state [Unknown]
  - Electrocardiogram QRS complex prolonged [Recovering/Resolving]
  - Leukocytosis [Not Recovered/Not Resolved]
  - Suicide attempt [Unknown]
  - Agitation [Unknown]
  - Mydriasis [Not Recovered/Not Resolved]
  - Generalised tonic-clonic seizure [Unknown]
  - Somnolence [Unknown]
  - Overdose [Recovering/Resolving]
  - Encephalopathy [Unknown]
  - Hallucination, visual [Unknown]
  - Hypotension [Unknown]
  - Hyperreflexia [Unknown]
  - Transaminases increased [Recovering/Resolving]
  - Electrocardiogram QT prolonged [Recovering/Resolving]
